FAERS Safety Report 7224335-2 (Version None)
Quarter: 2011Q1

REPORT INFORMATION
  Report Type: 
  Country: None (occurrence: None)
  Receive Date: 20110113
  Receipt Date: 20110111
  Transmission Date: 20110831
  Serious: Yes (Life-Threatening, Other)
  Sender: FDA-Public Use
  Company Number: FR-BRISTOL-MYERS SQUIBB COMPANY-15480205

PATIENT
  Age: 70 Year
  Sex: Female

DRUGS (2)
  1. AZACTAM [Suspect]
     Indication: LUNG DISORDER
     Route: 042
     Dates: start: 20100915, end: 20100917
  2. AMOXICILLIN [Suspect]
     Indication: LUNG DISORDER
     Route: 048
     Dates: start: 20100913, end: 20100915

REACTIONS (1)
  - FEBRILE BONE MARROW APLASIA [None]
